FAERS Safety Report 17044602 (Version 1)
Quarter: 2019Q4

REPORT INFORMATION
  Report Type: Spontaneous
  Country: US (occurrence: US)
  Receive Date: 20191118
  Receipt Date: 20191118
  Transmission Date: 20200122
  Serious: No
  Sender: FDA-Public Use
  Company Number: US-009507513-1911USA005189

PATIENT
  Age: 38 Year
  Sex: Female

DRUGS (6)
  1. PUREGON PEN [DEVICE] [Suspect]
     Active Substance: DEVICE
  2. VITAMINS (UNSPECIFIED) [Suspect]
     Active Substance: VITAMINS
     Dosage: UNK
  3. ESTRADIOL. [Suspect]
     Active Substance: ESTRADIOL
     Dosage: UNK
  4. NOVAREL [Suspect]
     Active Substance: CHORIOGONADOTROPIN ALFA
     Dosage: UNK
  5. FOLLISTIM AQ [Suspect]
     Active Substance: FOLLITROPIN
     Indication: INFERTILITY FEMALE
     Dosage: 300 IU, QD, STRENGTH: 900 IU/ 1.08 ML
     Route: 058
     Dates: start: 20190629
  6. MENOPUR [Suspect]
     Active Substance: FOLLITROPIN\LUTEINIZING HORMONE
     Dosage: UNK

REACTIONS (1)
  - Abdominal distension [Unknown]

NARRATIVE: CASE EVENT DATE: 201907
